FAERS Safety Report 13549966 (Version 3)
Quarter: 2020Q1

REPORT INFORMATION
  Report Type: Spontaneous
  Country: AR (occurrence: AR)
  Receive Date: 20170516
  Receipt Date: 20200123
  Transmission Date: 20200409
  Serious: Yes (Hospitalization, Other)
  Sender: FDA-Public Use
  Company Number: AR-ROCHE-1935071

PATIENT
  Age: 59 Year
  Sex: Male

DRUGS (2)
  1. LUCENTIS [Suspect]
     Active Substance: RANIBIZUMAB
     Indication: DIABETIC RETINOPATHY
     Dosage: 1 ON EACH EYE EVERY 21 DAYS
     Route: 065
     Dates: start: 201209, end: 201709
  2. AVASTIN [Concomitant]
     Active Substance: BEVACIZUMAB
     Indication: PRODUCT USED FOR UNKNOWN INDICATION
     Route: 065

REACTIONS (12)
  - Visual impairment [Not Recovered/Not Resolved]
  - Thrombosis [Unknown]
  - Intestinal obstruction [Not Recovered/Not Resolved]
  - Amnesia [Not Recovered/Not Resolved]
  - Inappropriate schedule of product administration [Unknown]
  - Iris neovascularisation [Unknown]
  - Intraocular pressure decreased [Not Recovered/Not Resolved]
  - Retinal detachment [Not Recovered/Not Resolved]
  - Foreign body in eye [Not Recovered/Not Resolved]
  - Eye oedema [Unknown]
  - Gastrointestinal disorder [Not Recovered/Not Resolved]
  - Optic atrophy [Not Recovered/Not Resolved]

NARRATIVE: CASE EVENT DATE: 2014
